FAERS Safety Report 7600068-5 (Version None)
Quarter: 2011Q2

REPORT INFORMATION
  Report Type: 
  Country: None (occurrence: None)
  Receive Date: 20110629
  Receipt Date: 20110616
  Transmission Date: 20111010
  Serious: Yes (Life-Threatening, Hospitalization, Other)
  Sender: FDA-Public Use
  Company Number: 2011MA007669

PATIENT
  Age: 28 Year
  Sex: Female

DRUGS (1)
  1. RANITIDINE [Suspect]
     Dosage: IV
     Route: 042

REACTIONS (4)
  - ANAPHYLACTIC REACTION [None]
  - OBSTRUCTED LABOUR [None]
  - DRUG EXPOSURE DURING PREGNANCY [None]
  - HAEMOGLOBIN DECREASED [None]
